FAERS Safety Report 25373254 (Version 2)
Quarter: 2025Q2

REPORT INFORMATION
  Report Type: Spontaneous
  Country: JP (occurrence: JP)
  Receive Date: 20250529
  Receipt Date: 20250627
  Transmission Date: 20250716
  Serious: Yes (Life-Threatening, Hospitalization)
  Sender: ROCHE
  Company Number: JP-ROCHE-10000290976

PATIENT
  Age: 65 Year
  Sex: Female
  Weight: 86.7 kg

DRUGS (6)
  1. BEVACIZUMAB [Suspect]
     Active Substance: BEVACIZUMAB
     Indication: Hepatocellular carcinoma
     Route: 065
  2. ATEZOLIZUMAB [Suspect]
     Active Substance: ATEZOLIZUMAB
     Indication: Hepatocellular carcinoma
     Route: 065
  3. POTASSIUM IODIDE [Concomitant]
     Active Substance: POTASSIUM IODIDE
  4. BISOPROLOL [Concomitant]
     Active Substance: BISOPROLOL
  5. AZOSEMIDE [Concomitant]
     Active Substance: AZOSEMIDE
  6. LEVOTHYROXINE SODIUM [Concomitant]
     Active Substance: LEVOTHYROXINE SODIUM

REACTIONS (2)
  - Hyperthyroidism [Unknown]
  - Cardiac failure congestive [Unknown]
